FAERS Safety Report 14692871 (Version 2)
Quarter: 2018Q2

REPORT INFORMATION
  Report Type: Spontaneous
  Country: DE (occurrence: DE)
  Receive Date: 20180329
  Receipt Date: 20180406
  Transmission Date: 20180711
  Serious: Yes (Hospitalization, Other)
  Sender: FDA-Public Use
  Company Number: DE-WEST-WARD PHARMACEUTICALS CORP.-DE-H14001-18-02323

PATIENT
  Age: 83 Year
  Sex: Male
  Weight: 69 kg

DRUGS (25)
  1. ABRAXANE [Suspect]
     Active Substance: PACLITAXEL
     Indication: NON-SMALL CELL LUNG CANCER
     Dosage: 80 MILLIGRAM/SQ. METER
     Route: 041
     Dates: start: 20170922
  2. ONDANSETRON [Concomitant]
     Active Substance: ONDANSETRON
     Indication: PROPHYLAXIS
     Route: 041
     Dates: start: 20170922
  3. INNOHEP [Concomitant]
     Active Substance: TINZAPARIN SODIUM
     Indication: ATRIAL FIBRILLATION
     Dosage: .7 MILLILITER
     Route: 058
     Dates: start: 20170924
  4. FUCICORT [Concomitant]
     Active Substance: BETAMETHASONE VALERATE\FUSIDIC ACID
     Indication: SKIN ABRASION
     Dosage: 5 MILLIGRAM
     Route: 061
     Dates: start: 20171007
  5. ABRAXANE [Suspect]
     Active Substance: PACLITAXEL
     Dosage: 70 MILLIGRAM/SQ. METER
     Route: 041
     Dates: start: 20180209, end: 20180217
  6. TOREM [Concomitant]
     Active Substance: TORSEMIDE
     Indication: HYPERTENSION
     Dosage: 5 MILLIGRAM
     Route: 048
  7. FUCICORT [Concomitant]
     Active Substance: BETAMETHASONE VALERATE\FUSIDIC ACID
     Indication: SKIN ABRASION
     Dosage: 2 DOSAGE FORMS
     Route: 061
     Dates: start: 20171007
  8. PREDNISOLON-SULFACHIN-LINIMENTUM [Concomitant]
     Indication: ERYSIPELAS
     Dosage: 1 APPLICATION, TWICE DAILY
     Route: 061
     Dates: start: 20171215
  9. DEKRISTOL [Concomitant]
     Active Substance: CHOLECALCIFEROL
     Indication: OSTEOPOROSIS
     Dosage: 2000 IU (INTERNATIONAL UNIT)
     Route: 048
  10. METOPROLOL. [Concomitant]
     Active Substance: METOPROLOL
     Indication: ATRIAL FIBRILLATION
     Dosage: 190 MILLIGRAM
     Route: 048
  11. SODIUM CHLORIDE. [Concomitant]
     Active Substance: SODIUM CHLORIDE
     Indication: PROPHYLAXIS
     Route: 041
     Dates: start: 20170922
  12. CARBOPLATIN. [Suspect]
     Active Substance: CARBOPLATIN
     Indication: NON-SMALL CELL LUNG CANCER
     Dosage: 4.8 MG*MIN/ML ()
     Route: 041
     Dates: start: 20170922, end: 20180209
  13. GALANTAMINE. [Concomitant]
     Active Substance: GALANTAMINE
     Indication: DEMENTIA
     Dosage: 16 MILLIGRAM
     Route: 048
  14. CETIRIZINE [Concomitant]
     Active Substance: CETIRIZINE HYDROCHLORIDE
     Indication: SKIN ABRASION
     Dosage: 10 MILLIGRAM
     Route: 048
     Dates: start: 20171007
  15. HUMALOG MIX [Concomitant]
     Active Substance: INSULIN LISPRO
     Indication: DIABETES MELLITUS
     Dosage: 16 IU (INTERNATIONAL UNIT)
     Route: 058
  16. MOXIFLOXACIN. [Concomitant]
     Active Substance: MOXIFLOXACIN
     Indication: BACTERAEMIA
     Dosage: 5 MILLIGRAM
     Route: 061
     Dates: start: 20180112, end: 20180118
  17. TRAMAL [Concomitant]
     Active Substance: TRAMADOL
     Indication: ATRIAL FIBRILLATION
     Dosage: 100 MILLIGRAM
     Route: 048
  18. DIGITOXIN [Concomitant]
     Active Substance: DIGITOXIN
     Indication: ATRIAL FIBRILLATION
     Dosage: .07 MILLIGRAM
     Route: 048
  19. DEXAMETHASONE. [Concomitant]
     Active Substance: DEXAMETHASONE
     Indication: PROPHYLAXIS
     Route: 041
     Dates: start: 20170922
  20. SPIOLTO [Concomitant]
     Active Substance: OLODATEROL HYDROCHLORIDE\TIOTROPIUM BROMIDE MONOHYDRATE
     Indication: DYSPNOEA
     Dosage: 5 MICROGRAM
     Route: 055
  21. CALCIUM D3 [Concomitant]
     Active Substance: CALCIUM\CHOLECALCIFEROL
     Indication: OSTEOPOROSIS
     Dosage: 1000 IU (INTERNATIONAL UNIT)
     Route: 048
  22. KREON [Concomitant]
     Active Substance: PANCRELIPASE
     Indication: PANCREATITIS CHRONIC
     Dosage: 1800 MILLIGRAM
     Route: 048
  23. PANTOZOL [Concomitant]
     Active Substance: PANTOPRAZOLE SODIUM
     Indication: PANCREATITIS CHRONIC
     Dosage: 40 MILLIGRAM
     Route: 048
  24. MILNANEURAX [Concomitant]
     Active Substance: MILNACIPRAN HYDROCHLORIDE
     Indication: DEMENTIA
     Dosage: 25 MILLIGRAM
     Route: 048
  25. INSUMAN RAPID [Concomitant]
     Active Substance: INSULIN HUMAN
     Indication: DIABETES MELLITUS
     Dosage: 26 IU (INTERNATIONAL UNIT)
     Route: 058

REACTIONS (6)
  - Thrombocytopenia [Not Recovered/Not Resolved]
  - Jaundice [Unknown]
  - General physical health deterioration [Not Recovered/Not Resolved]
  - Anaemia [Not Recovered/Not Resolved]
  - Off label use [Unknown]
  - White blood cell count decreased [Recovering/Resolving]

NARRATIVE: CASE EVENT DATE: 20170922
